FAERS Safety Report 17348598 (Version 3)
Quarter: 2020Q1

REPORT INFORMATION
  Report Type: Report from Study
  Country: US (occurrence: US)
  Receive Date: 20200129
  Receipt Date: 20200327
  Transmission Date: 20200409
  Serious: Yes (Death)
  Sender: FDA-Public Use
  Company Number: US-EXELIXIS-CABO-19024330

PATIENT
  Age: 75 Year
  Sex: Male

DRUGS (1)
  1. CABOMETYX [Suspect]
     Active Substance: CABOZANTINIB S-MALATE
     Indication: HEPATOCELLULAR CARCINOMA
     Dosage: 20 MG QD (IN THE MORNING, WITHOUT FOOD)
     Dates: start: 20190912

REACTIONS (12)
  - Back pain [Recovered/Resolved]
  - Vomiting [Recovered/Resolved]
  - Blood urine present [Recovered/Resolved]
  - Death [Fatal]
  - Taste disorder [Unknown]
  - Malignant neoplasm progression [Unknown]
  - Scab [Recovering/Resolving]
  - Acidosis [Unknown]
  - Platelet count decreased [Unknown]
  - Asthenia [Unknown]
  - Protein total abnormal [Unknown]
  - Diarrhoea [Unknown]

NARRATIVE: CASE EVENT DATE: 20190923
